FAERS Safety Report 20194627 (Version 3)
Quarter: 2025Q1

REPORT INFORMATION
  Report Type: Spontaneous
  Country: US (occurrence: US)
  Receive Date: 20211216
  Receipt Date: 20250128
  Transmission Date: 20250409
  Serious: Yes (Other)
  Sender: PFIZER
  Company Number: US-PFIZER INC-202101723755

PATIENT
  Age: 88 Year
  Sex: Male
  Weight: 88 kg

DRUGS (4)
  1. METOPROLOL SUCCINATE [Suspect]
     Active Substance: METOPROLOL SUCCINATE
     Indication: Coronary artery disease
     Dosage: 25 MG, DAILY
  2. LISINOPRIL [Suspect]
     Active Substance: LISINOPRIL
     Indication: Cardiomyopathy
     Dosage: 10 MG, DAILY
  3. WARFARIN [Suspect]
     Active Substance: WARFARIN
     Indication: Anticoagulant therapy
     Dosage: 6 MG, DAILY
  4. WARFARIN [Suspect]
     Active Substance: WARFARIN
     Indication: Atrial flutter

REACTIONS (1)
  - Cerebrovascular accident [Unknown]

NARRATIVE: CASE EVENT DATE: 20190101
